FAERS Safety Report 7044110-1 (Version None)
Quarter: 2010Q4

REPORT INFORMATION
  Report Type: 
  Country: None (occurrence: None)
  Receive Date: 20101013
  Receipt Date: 20101007
  Transmission Date: 20110411
  Serious: Yes (Other)
  Sender: FDA-Public Use
  Company Number: US-PFIZER INC-2010114836

PATIENT
  Sex: Male
  Weight: 42.3 kg

DRUGS (19)
  1. CLEOCIN [Suspect]
     Indication: STAPHYLOCOCCAL INFECTION
     Dosage: 250 MG, 3X/DAY
     Route: 042
     Dates: start: 20100819, end: 20100903
  2. LORTAB [Concomitant]
     Indication: PAIN
     Dosage: 7.5/500MG
     Route: 048
  3. AMBISOME [Concomitant]
     Indication: BRONCHOPULMONARY ASPERGILLOSIS
     Dosage: 211.5 MG, EVERY 5 HOURS
     Route: 041
  4. DEXTROMETHORPHAN [Concomitant]
     Dosage: 60 MG, 2X/DAY
  5. DIPHENHYDRAMINE [Concomitant]
     Dosage: UNK
  6. FERROUS SULFATE [Concomitant]
     Dosage: 325 MG, 2X/DAY
  7. LASIX [Concomitant]
     Dosage: UNK
     Route: 048
  8. LORAZEPAM [Concomitant]
     Dosage: 0.6 MG, 3X/DAY
     Route: 042
  9. MEROPENEM [Concomitant]
     Dosage: 846 MG, 3X/DAY
     Route: 042
  10. METHADONE [Concomitant]
     Dosage: 4.5 MG, 4X/DAY
     Route: 042
  11. METHYLPREDNISOLONE [Concomitant]
     Dosage: 5 MG, 1X/DAY
     Route: 042
  12. NALOXONE [Concomitant]
     Dosage: 2 G, 4X/DAY
     Route: 042
  13. PROTONIX [Concomitant]
     Dosage: 40 MG, 1X/DAY
     Route: 042
  14. POTASSIUM CHLORIDE [Concomitant]
     Dosage: 40 MEQ, 3X/DAY
  15. RANITIDINE [Concomitant]
     Dosage: 50 MG, 3X/DAY
     Route: 042
  16. SPIRONOLACTONE [Concomitant]
     Dosage: 40 MG, 1X/DAY
  17. HYDROMORPHONE [Concomitant]
     Dosage: UNK
  18. DUONEB [Concomitant]
     Dosage: UNK
  19. ACETYLCYSTEINE [Concomitant]
     Dosage: UNK

REACTIONS (1)
  - HYPERPHOSPHATAEMIA [None]
